FAERS Safety Report 21463232 (Version 4)
Quarter: 2022Q4

REPORT INFORMATION
  Report Type: Report from Study
  Country: US (occurrence: US)
  Receive Date: 20221017
  Receipt Date: 20221212
  Transmission Date: 20230113
  Serious: No
  Sender: FDA-Public Use
  Company Number: US-ABBVIE-4159510

PATIENT
  Age: 77 Year
  Sex: Female

DRUGS (1)
  1. HUMIRA [Suspect]
     Active Substance: ADALIMUMAB
     Indication: Rheumatoid arthritis
     Dosage: CITRATE FREE
     Route: 058

REACTIONS (5)
  - Upper limb fracture [Unknown]
  - Spinal fracture [Recovering/Resolving]
  - Pain in extremity [Unknown]
  - Therapeutic product effect decreased [Unknown]
  - Fall [Unknown]

NARRATIVE: CASE EVENT DATE: 20220301
